FAERS Safety Report 4667149-X (Version None)
Quarter: 2005Q2

REPORT INFORMATION
  Report Type: 
  Country: None (occurrence: None)
  Receive Date: 20050520
  Receipt Date: 20040623
  Transmission Date: 20051028
  Serious: Yes (Other)
  Sender: FDA-Public Use
  Company Number: PHEH2004US06837

PATIENT
  Age: 78 Year
  Sex: Female

DRUGS (3)
  1. HERCEPTIN [Concomitant]
  2. XELODA [Concomitant]
  3. ZOMETA [Suspect]
     Indication: BREAST CANCER METASTATIC
     Dosage: 4 MG ONE TIME PER MONTH
     Route: 042
     Dates: start: 20030101, end: 20040101

REACTIONS (2)
  - OSTEONECROSIS [None]
  - PAIN IN JAW [None]
